FAERS Safety Report 6030838-9 (Version None)
Quarter: 2009Q1

REPORT INFORMATION
  Report Type: 
  Country: None (occurrence: None)
  Receive Date: 20090107
  Receipt Date: 20081231
  Transmission Date: 20090719
  Serious: Yes (Death)
  Sender: FDA-Public Use
  Company Number: IN-GENENTECH-274973

PATIENT
  Age: 50 Year
  Sex: Male

DRUGS (1)
  1. ACTIVASE [Suspect]
     Indication: ISCHAEMIC STROKE
     Dosage: 63 MG, UNK
     Route: 042
     Dates: start: 20080906, end: 20080906

REACTIONS (2)
  - PNEUMONIA [None]
  - SEPSIS [None]
